FAERS Safety Report 7583367-5 (Version None)
Quarter: 2011Q2

REPORT INFORMATION
  Report Type: 
  Country: None (occurrence: None)
  Receive Date: 20110627
  Receipt Date: 20110627
  Transmission Date: 20111010
  Serious: Yes (Other)
  Sender: FDA-Public Use
  Company Number: None

PATIENT
  Age: 23 Month
  Sex: Female
  Weight: 12.2471 kg

DRUGS (1)
  1. AMOXICILLIN [Suspect]
     Indication: EAR INFECTION
     Dosage: 7 ML EVERY 8 HOURS PO
     Route: 048
     Dates: start: 20110608, end: 20110618

REACTIONS (2)
  - DIARRHOEA [None]
  - RASH [None]
